FAERS Safety Report 8923921 (Version 1)
Quarter: 2012Q4

REPORT INFORMATION
  Report Type: 
  Country: US (occurrence: US)
  Receive Date: 20121126
  Receipt Date: 20121126
  Transmission Date: 20130627
  Serious: No
  Sender: FDA-Public Use
  Company Number: US-PFIZER INC-2012034319

PATIENT
  Age: 54 Year
  Sex: Male
  Weight: 84.35 kg

DRUGS (3)
  1. PANTOPRAZOLE [Suspect]
     Indication: HEARTBURN
     Dosage: 40 mg, 1x/day
  2. PANTOPRAZOLE [Suspect]
     Indication: REFLUX ESOPHAGITIS
  3. PERCOCET [Concomitant]
     Indication: NEUROPATHIC PAIN
     Dosage: 5/325 mg, as needed
     Route: 048

REACTIONS (4)
  - Expired drug administered [Unknown]
  - Blood cholesterol increased [Recovering/Resolving]
  - Protein total decreased [Recovering/Resolving]
  - Blood glucose increased [Recovering/Resolving]
